FAERS Safety Report 5983477-X (Version None)
Quarter: 2008Q4

REPORT INFORMATION
  Report Type: 
  Country: None (occurrence: None)
  Receive Date: 20081208
  Receipt Date: 20080306
  Transmission Date: 20090506
  Serious: No
  Sender: FDA-Public Use
  Company Number: US-AMGEN-KDL268047

PATIENT
  Sex: Male
  Weight: 136.2 kg

DRUGS (5)
  1. ENBREL [Suspect]
     Indication: PSORIATIC ARTHROPATHY
     Route: 058
     Dates: start: 20060724
  2. BENICAR [Concomitant]
  3. LOVASTATIN [Concomitant]
  4. ZINC [Concomitant]
  5. UNSPECIFIED TOPICAL PRODUCT [Concomitant]
     Route: 061

REACTIONS (3)
  - BRONCHITIS [None]
  - INFLUENZA [None]
  - SINUSITIS [None]
